FAERS Safety Report 24711555 (Version 10)
Quarter: 2025Q2

REPORT INFORMATION
  Report Type: Spontaneous
  Country: CO (occurrence: CO)
  Receive Date: 20241209
  Receipt Date: 20250505
  Transmission Date: 20250716
  Serious: No
  Sender: PFIZER
  Company Number: CO-PFIZER INC-202400315500

PATIENT
  Sex: Male

DRUGS (1)
  1. GENOTROPIN [Suspect]
     Active Substance: SOMATROPIN
     Dosage: 2.2 MG, DAILY

REACTIONS (7)
  - Device breakage [Unknown]
  - Device mechanical issue [Unknown]
  - Needle issue [Unknown]
  - Device deployment issue [Unknown]
  - Device leakage [Unknown]
  - Device malfunction [Unknown]
  - Drug dose omission by device [Unknown]
